FAERS Safety Report 23579862 (Version 1)
Quarter: 2024Q1

REPORT INFORMATION
  Report Type: Spontaneous
  Country: US (occurrence: US)
  Receive Date: 20240229
  Receipt Date: 20240229
  Transmission Date: 20240410
  Serious: Yes (Other)
  Sender: FDA-Public Use
  Company Number: US-JNJFOC-20240261610

PATIENT
  Sex: Female

DRUGS (2)
  1. ELMIRON [Suspect]
     Active Substance: PENTOSAN POLYSULFATE SODIUM
     Indication: Cystitis interstitial
     Route: 065
  2. LINZESS [Concomitant]
     Active Substance: LINACLOTIDE
     Route: 065

REACTIONS (1)
  - Cystitis interstitial [Not Recovered/Not Resolved]

NARRATIVE: CASE EVENT DATE: 20240101
